FAERS Safety Report 6155258-8 (Version None)
Quarter: 2009Q3

REPORT INFORMATION
  Report Type: 
  Country: None (occurrence: None)
  Receive Date: 20090410
  Receipt Date: 20090410
  Transmission Date: 20100115
  Serious: Yes (Life-Threatening, Disabling)
  Sender: FDA-Public Use
  Company Number: None

PATIENT
  Age: 36 Year
  Sex: Female
  Weight: 83.0083 kg

DRUGS (2)
  1. LODINE [Suspect]
     Indication: BACK PAIN
     Dosage: 400MG TWICE DAILY ORAL JULY 1993 - 1H1994
     Route: 048
     Dates: start: 19930701, end: 19940101
  2. IBUPROFEN [Suspect]
     Dates: start: 19940801, end: 19950401

REACTIONS (40)
  - ABDOMINAL RIGIDITY [None]
  - ABNORMAL FAECES [None]
  - ACTIVITIES OF DAILY LIVING IMPAIRED [None]
  - AMOEBIASIS [None]
  - ARTHRALGIA [None]
  - ASTHENIA [None]
  - BACTERIAL INFECTION [None]
  - BILE DUCT OBSTRUCTION [None]
  - BILIARY TRACT DISORDER [None]
  - BLOOD URINE PRESENT [None]
  - CESTODE INFECTION [None]
  - COLONIC OBSTRUCTION [None]
  - DYSPEPSIA [None]
  - FAECES DISCOLOURED [None]
  - FASCIOLIASIS [None]
  - FAT INTOLERANCE [None]
  - FLATULENCE [None]
  - FOOD ALLERGY [None]
  - GALLBLADDER DISORDER [None]
  - GASTRIC ULCER [None]
  - GASTROINTESTINAL CANDIDIASIS [None]
  - GASTROINTESTINAL DISORDER [None]
  - GASTROINTESTINAL OBSTRUCTION [None]
  - GASTROOESOPHAGEAL REFLUX DISEASE [None]
  - HAEMATOCHEZIA [None]
  - IMPAIRED WORK ABILITY [None]
  - INFECTION PROTOZOAL [None]
  - JAUNDICE [None]
  - KLEBSIELLA INFECTION [None]
  - LIVER DISORDER [None]
  - MALNUTRITION [None]
  - MENTAL IMPAIRMENT [None]
  - MUCOUS MEMBRANE DISORDER [None]
  - NEMATODIASIS [None]
  - PALPITATIONS [None]
  - PARASITIC GASTROENTERITIS [None]
  - RENAL HAEMORRHAGE [None]
  - TRICHINIASIS [None]
  - VIRAL INFECTION [None]
  - WEIGHT DECREASED [None]
